FAERS Safety Report 25256923 (Version 1)
Quarter: 2025Q2

REPORT INFORMATION
  Report Type: Spontaneous
  Country: CN (occurrence: CN)
  Receive Date: 20250430
  Receipt Date: 20250430
  Transmission Date: 20250717
  Serious: Yes (Other)
  Sender: BEIGENE
  Company Number: CN-BEIGENE-BGN-2025-006654

PATIENT
  Age: 56 Year

DRUGS (6)
  1. TISLELIZUMAB [Suspect]
     Active Substance: TISLELIZUMAB
     Indication: Oesophageal squamous cell carcinoma
     Dosage: 160 MILLIGRAM, QD
  2. TISLELIZUMAB [Suspect]
     Active Substance: TISLELIZUMAB
     Dosage: 160 MILLIGRAM, QD
     Route: 041
  3. TISLELIZUMAB [Suspect]
     Active Substance: TISLELIZUMAB
     Dosage: 160 MILLIGRAM, QD
     Route: 041
  4. TISLELIZUMAB [Suspect]
     Active Substance: TISLELIZUMAB
     Dosage: 160 MILLIGRAM, QD
  5. PACLITAXEL [Suspect]
     Active Substance: PACLITAXEL
     Indication: Oesophageal squamous cell carcinoma
     Dosage: 185.6 MILLIGRAM, QD
     Route: 041
  6. PACLITAXEL [Suspect]
     Active Substance: PACLITAXEL
     Dosage: 185.6 MILLIGRAM, QD

REACTIONS (4)
  - Hypokalaemia [Recovering/Resolving]
  - Nausea [Recovering/Resolving]
  - Vomiting [Unknown]
  - Underdose [Unknown]
